FAERS Safety Report 13212636 (Version 1)
Quarter: 2017Q1

REPORT INFORMATION
  Report Type: Spontaneous
  Country: US (occurrence: US)
  Receive Date: 20170210
  Receipt Date: 20170210
  Transmission Date: 20170428
  Serious: Yes (Hospitalization, Other)
  Sender: FDA-Public Use
  Company Number: None

PATIENT
  Age: 20 Year
  Sex: Male
  Weight: 163 kg

DRUGS (19)
  1. TOPOSAR [Suspect]
     Active Substance: ETOPOSIDE
     Indication: HODGKIN^S DISEASE
     Route: 042
     Dates: start: 20170104
  2. LORAZEPAM. [Concomitant]
     Active Substance: LORAZEPAM
  3. BLEOMYCIN [Concomitant]
     Active Substance: BLEOMYCIN SULFATE
  4. VINCRISTINE [Concomitant]
     Active Substance: VINCRISTINE
  5. SALINE [Concomitant]
     Active Substance: SODIUM CHLORIDE
  6. PREDNISONE. [Concomitant]
     Active Substance: PREDNISONE
  7. ETOPOSIDE. [Concomitant]
     Active Substance: ETOPOSIDE
  8. DIPHENHYDRAMINE. [Concomitant]
     Active Substance: DIPHENHYDRAMINE
  9. DEXAMETHASONE. [Concomitant]
     Active Substance: DEXAMETHASONE
  10. TOPOSAR [Suspect]
     Active Substance: ETOPOSIDE
     Indication: HODGKIN^S DISEASE
     Route: 042
     Dates: start: 20170126, end: 20170127
  11. CAPHOSOL [Concomitant]
     Active Substance: CALCIUM CHLORIDE\SODIUM CHLORIDE\SODIUM PHOSPHATE, DIBASIC, ANHYDROUS\SODIUM PHOSPHATE, MONOBASIC, ANHYDROUS
  12. CHEMOTHERAPY [Concomitant]
     Active Substance: UNSPECIFIED INGREDIENT
  13. FAMOTIDINE. [Concomitant]
     Active Substance: FAMOTIDINE
  14. DOXORUBICIN [Concomitant]
     Active Substance: DOXORUBICIN
  15. SOLU-MEDROL [Concomitant]
     Active Substance: METHYLPREDNISOLONE SODIUM SUCCINATE
  16. ONDANSETRON [Concomitant]
     Active Substance: ONDANSETRON
  17. CYCLOPHOSPHAMIDE. [Concomitant]
     Active Substance: CYCLOPHOSPHAMIDE
  18. BENADRYL [Concomitant]
     Active Substance: DIPHENHYDRAMINE HYDROCHLORIDE
  19. MONTELUKAST [Concomitant]
     Active Substance: MONTELUKAST SODIUM

REACTIONS (9)
  - Anaphylactic reaction [None]
  - Erythema [None]
  - Infusion related reaction [None]
  - Dyspnoea [None]
  - Abdominal discomfort [None]
  - Nausea [None]
  - Respiratory distress [None]
  - Hyperhidrosis [None]
  - Throat irritation [None]

NARRATIVE: CASE EVENT DATE: 20170104
